FAERS Safety Report 6425303-0 (Version None)
Quarter: 2009Q4

REPORT INFORMATION
  Report Type: 
  Country: None (occurrence: None)
  Receive Date: 20091102
  Receipt Date: 20091102
  Transmission Date: 20100525
  Serious: No
  Sender: FDA-Public Use
  Company Number: None

PATIENT
  Age: 64 Year
  Sex: Male
  Weight: 61 kg

DRUGS (2)
  1. FENTANYL-100 [Suspect]
     Indication: PAIN
     Dosage: 600 MCG ONCE IV
     Route: 042
     Dates: start: 20081027, end: 20081027
  2. FENTANYL-100 [Suspect]
     Indication: SEDATIVE THERAPY
     Dosage: 600 MCG ONCE IV
     Route: 042
     Dates: start: 20081027, end: 20081027

REACTIONS (6)
  - APNOEA [None]
  - HYPERCAPNIA [None]
  - POST PROCEDURAL COMPLICATION [None]
  - RESPIRATORY ACIDOSIS [None]
  - RESPIRATORY DEPRESSION [None]
  - SEDATION [None]
